FAERS Safety Report 12540153 (Version 2)
Quarter: 2016Q4

REPORT INFORMATION
  Report Type: Spontaneous
  Country: AR (occurrence: AR)
  Receive Date: 20160708
  Receipt Date: 20161130
  Transmission Date: 20170207
  Serious: Yes (Hospitalization, Other)
  Sender: FDA-Public Use
  Company Number: AR-PFIZER INC-2016324213

PATIENT
  Age: 72 Year
  Sex: Male

DRUGS (1)
  1. SUTENT [Suspect]
     Active Substance: SUNITINIB MALATE
     Indication: METASTATIC RENAL CELL CARCINOMA
     Dosage: 50 MG, CYCLIC (4/2 SCHEME)
     Dates: start: 20120110

REACTIONS (14)
  - Malaise [Recovered/Resolved]
  - Dizziness [Recovered/Resolved]
  - Incorrect product storage [Unknown]
  - Oxygen saturation abnormal [Recovering/Resolving]
  - Weight decreased [Recovered/Resolved]
  - Chronic obstructive pulmonary disease [Recovering/Resolving]
  - Syncope [Recovered/Resolved]
  - Enterocolitis [Recovered/Resolved]
  - Colitis [Recovered/Resolved]
  - Emphysema [Recovered/Resolved]
  - Pneumonitis [Recovering/Resolving]
  - Gastroenteritis [Recovered/Resolved]
  - Loss of consciousness [Recovered/Resolved]
  - Urinary tract infection [Recovered/Resolved]

NARRATIVE: CASE EVENT DATE: 20160421
